FAERS Safety Report 16093899 (Version 1)
Quarter: 2019Q1

REPORT INFORMATION
  Report Type: Spontaneous
  Country: US (occurrence: US)
  Receive Date: 20190320
  Receipt Date: 20190320
  Transmission Date: 20190418
  Serious: Yes (Other)
  Sender: FDA-Public Use
  Company Number: US-PURDUE-USA-2019-0146484

PATIENT
  Age: 88 Year
  Sex: Female

DRUGS (1)
  1. HYDROCODONE BITARTRATE (SIMILAR TO NDA 206627) [Suspect]
     Active Substance: HYDROCODONE BITARTRATE
     Indication: PRODUCT USED FOR UNKNOWN INDICATION
     Route: 048

REACTIONS (7)
  - Coronary artery disease [Recovered/Resolved]
  - Cardiac failure [Recovered/Resolved]
  - Presyncope [Recovered/Resolved]
  - Dyspnoea [Recovered/Resolved]
  - Myocardial infarction [Recovered/Resolved]
  - Bedridden [Recovered/Resolved]
  - Chest pain [Recovered/Resolved]
